FAERS Safety Report 6333748-2 (Version None)
Quarter: 2009Q3

REPORT INFORMATION
  Report Type: 
  Country: None (occurrence: None)
  Receive Date: 20090829
  Receipt Date: 20090528
  Transmission Date: 20100115
  Serious: No
  Sender: FDA-Public Use
  Company Number: US-ABBOTT-09P-163-0576653-00

PATIENT
  Sex: Female

DRUGS (3)
  1. SIMCOR [Suspect]
     Indication: BLOOD TRIGLYCERIDES INCREASED
     Dosage: 500/20MG DAILY  500/20MG DAILY
     Dates: start: 20090201, end: 20090401
  2. LANTUS [Concomitant]
     Indication: DIABETES MELLITUS
  3. BYETTA [Concomitant]
     Indication: DIABETES MELLITUS

REACTIONS (3)
  - FLUSHING [None]
  - RASH ERYTHEMATOUS [None]
  - SKIN BURNING SENSATION [None]
